FAERS Safety Report 19015742 (Version 1)
Quarter: 2021Q1

REPORT INFORMATION
  Report Type: Report from Study
  Country: US (occurrence: US)
  Receive Date: 20210317
  Receipt Date: 20210317
  Transmission Date: 20210420
  Serious: Yes (Other)
  Sender: FDA-Public Use
  Company Number: US-SA-2021SA081643

PATIENT

DRUGS (4)
  1. RECOMBINANT HUMAN INTERLEUKIN?15. [Suspect]
     Active Substance: RECOMBINANT HUMAN INTERLEUKIN-15
     Dosage: 1 UG/KG
     Route: 058
  2. RECOMBINANT HUMAN INTERLEUKIN?15. [Suspect]
     Active Substance: RECOMBINANT HUMAN INTERLEUKIN-15
     Dosage: 2 UG/KG
     Route: 058
  3. RECOMBINANT HUMAN INTERLEUKIN?15. [Suspect]
     Active Substance: RECOMBINANT HUMAN INTERLEUKIN-15
     Indication: T-CELL LYMPHOMA REFRACTORY
     Dosage: 0.5 UG/KG
     Route: 058
  4. ALEMTUZUMAB [Suspect]
     Active Substance: ALEMTUZUMAB
     Indication: T-CELL LYMPHOMA REFRACTORY
     Dosage: 30 MG, TIW
     Route: 042

REACTIONS (2)
  - Thrombocytopenia [Unknown]
  - Lymphopenia [Unknown]
